FAERS Safety Report 6260784-7 (Version None)
Quarter: 2009Q3

REPORT INFORMATION
  Report Type: 
  Country: None (occurrence: None)
  Receive Date: 20090707
  Receipt Date: 20090625
  Transmission Date: 20100115
  Serious: Yes (Hospitalization)
  Sender: FDA-Public Use
  Company Number: 2009AP002392

PATIENT
  Age: 75 Year
  Sex: Male

DRUGS (4)
  1. CAPTOPRIL [Suspect]
     Indication: BLOOD PRESSURE INADEQUATELY CONTROLLED
     Dosage: PO
     Route: 048
  2. IMIPENEM (IMIPENEM) [Suspect]
     Indication: PANCREATITIS ACUTE
     Dosage: SC
     Route: 058
  3. INDAPAMIDE [Concomitant]
  4. VALSARTAN [Concomitant]

REACTIONS (1)
  - LINEAR IGA DISEASE [None]
